FAERS Safety Report 11218519 (Version 1)
Quarter: 2015Q2

REPORT INFORMATION
  Report Type: Spontaneous
  Country: FR (occurrence: FR)
  Receive Date: 20150625
  Receipt Date: 20150625
  Transmission Date: 20150821
  Serious: Yes (Death)
  Sender: FDA-Public Use
  Company Number: FR-SA-2015SA089477

PATIENT
  Age: 68 Year
  Sex: Male

DRUGS (4)
  1. JEVTANA [Suspect]
     Active Substance: CABAZITAXEL
     Route: 042
     Dates: start: 20150520, end: 20150520
  2. EUPANTOL [Suspect]
     Active Substance: PANTOPRAZOLE SODIUM
     Route: 048
     Dates: start: 201503
  3. SOLUPRED [Suspect]
     Active Substance: PREDNISOLONE
     Route: 048
     Dates: start: 201503
  4. XTANDI [Suspect]
     Active Substance: ENZALUTAMIDE
     Route: 048
     Dates: end: 20150429

REACTIONS (5)
  - Jaundice [Fatal]
  - Hepatitis cholestatic [Fatal]
  - Acute hepatic failure [Fatal]
  - Ascites [Fatal]
  - Hepatic enzyme increased [Fatal]

NARRATIVE: CASE EVENT DATE: 2015
